FAERS Safety Report 14607040 (Version 1)
Quarter: 2018Q1

REPORT INFORMATION
  Report Type: Spontaneous
  Country: IT (occurrence: IT)
  Receive Date: 20180307
  Receipt Date: 20180307
  Transmission Date: 20180509
  Serious: Yes (Other)
  Sender: FDA-Public Use
  Company Number: IT-ELI_LILLY_AND_COMPANY-IT201803001741

PATIENT
  Age: 76 Year
  Sex: Female
  Weight: 47 kg

DRUGS (3)
  1. FLUOROURACILE AHCL [Suspect]
     Active Substance: FLUOROURACIL
     Indication: TONGUE NEOPLASM
     Dosage: 4000 MG, UNKNOWN
     Route: 042
     Dates: start: 20180124
  2. CISPLATINO ACCORD [Suspect]
     Active Substance: CISPLATIN
     Indication: TONGUE NEOPLASM
     Dosage: 100 MG, UNKNOWN
     Route: 042
     Dates: start: 20180124
  3. ERBITUX [Suspect]
     Active Substance: CETUXIMAB
     Indication: TONGUE NEOPLASM
     Dosage: 556 MG, UNKNOWN
     Route: 042
     Dates: start: 20180124

REACTIONS (2)
  - Stomatitis [Recovering/Resolving]
  - Haemorrhage [Recovering/Resolving]

NARRATIVE: CASE EVENT DATE: 20180213
